FAERS Safety Report 6769767-1 (Version None)
Quarter: 2010Q2

REPORT INFORMATION
  Report Type: 
  Country: None (occurrence: None)
  Receive Date: 20100615
  Receipt Date: 20100607
  Transmission Date: 20101027
  Serious: Yes (Life-Threatening, Hospitalization)
  Sender: FDA-Public Use
  Company Number: FR-ROCHE-708503

PATIENT
  Age: 43 Year
  Sex: Female
  Weight: 83 kg

DRUGS (2)
  1. BONIVA [Suspect]
     Indication: OSTEOPOROSIS
     Route: 042
     Dates: start: 20100412
  2. CALCIUM CARBONATE [Concomitant]

REACTIONS (2)
  - COMA [None]
  - METABOLIC ACIDOSIS [None]
